FAERS Safety Report 15867072 (Version 2)
Quarter: 2019Q1

REPORT INFORMATION
  Report Type: Spontaneous
  Country: US (occurrence: US)
  Receive Date: 20190125
  Receipt Date: 20190313
  Transmission Date: 20190417
  Serious: Yes (Life-Threatening, Hospitalization, Other)
  Sender: FDA-Public Use
  Company Number: US-LUPIN PHARMACEUTICALS INC.-2019-00272

PATIENT
  Age: 47 Year
  Sex: Male

DRUGS (2)
  1. AMLODIPINE [Suspect]
     Active Substance: AMLODIPINE BESYLATE
     Indication: SUICIDE ATTEMPT
     Dosage: 400 MG, SINGLE
     Route: 065
  2. LISINOPRIL. [Suspect]
     Active Substance: LISINOPRIL
     Indication: SUICIDE ATTEMPT
     Dosage: 200 MG, SINGLE
     Route: 065

REACTIONS (8)
  - Pulmonary oedema [Unknown]
  - Vomiting [Unknown]
  - Hypoxia [Recovering/Resolving]
  - Hypotension [Recovering/Resolving]
  - Lactic acidosis [Unknown]
  - Acute kidney injury [Recovering/Resolving]
  - Depressed level of consciousness [Unknown]
  - Overdose [Unknown]
